FAERS Safety Report 5170833-5 (Version None)
Quarter: 2006Q4

REPORT INFORMATION
  Report Type: 
  Country: None (occurrence: None)
  Receive Date: 20061213
  Receipt Date: 20061115
  Transmission Date: 20070319
  Serious: Yes (Other)
  Sender: FDA-Public Use
  Company Number: 2006UW24410

PATIENT
  Age: 72 Year
  Sex: Male

DRUGS (6)
  1. CRESTOR [Suspect]
     Route: 048
  2. PERCOCET [Concomitant]
  3. ENDOCET [Concomitant]
  4. AVINZA [Concomitant]
  5. LEVOXYL [Concomitant]
  6. NSAID [Concomitant]

REACTIONS (13)
  - ANOREXIA [None]
  - AZOTAEMIA [None]
  - BLOOD POTASSIUM INCREASED [None]
  - CONFUSIONAL STATE [None]
  - DIALYSIS [None]
  - DISORIENTATION [None]
  - ENCEPHALOPATHY [None]
  - LETHARGY [None]
  - NAUSEA [None]
  - RENAL TUBULAR NECROSIS [None]
  - RHABDOMYOLYSIS [None]
  - TREMOR [None]
  - VOMITING [None]
